FAERS Safety Report 7285668-7 (Version None)
Quarter: 2011Q1

REPORT INFORMATION
  Report Type: 
  Country: None (occurrence: None)
  Receive Date: 20110210
  Receipt Date: 20110204
  Transmission Date: 20110831
  Serious: Yes (Other)
  Sender: FDA-Public Use
  Company Number: B0679752A

PATIENT
  Age: 57 Year
  Sex: Female

DRUGS (5)
  1. CITALOPRAM [Concomitant]
     Dosage: 10MG PER DAY
     Route: 048
  2. GABAPENTIN [Concomitant]
     Indication: PAIN
     Dosage: 200MG TWICE PER DAY
     Route: 048
  3. REQUIP [Suspect]
     Indication: PARKINSON'S DISEASE
     Route: 048
     Dates: start: 20100101, end: 20100101
  4. MADOPAR [Concomitant]
     Route: 048
     Dates: start: 20100101
  5. OMEPRAZOLE [Concomitant]
     Route: 048

REACTIONS (1)
  - SUDDEN ONSET OF SLEEP [None]
